FAERS Safety Report 14236319 (Version 1)
Quarter: 2017Q4

REPORT INFORMATION
  Report Type: Spontaneous
  Country: FR (occurrence: FR)
  Receive Date: 20171129
  Receipt Date: 20171129
  Transmission Date: 20180321
  Serious: Yes (Other)
  Sender: FDA-Public Use
  Company Number: FR-MERCK KGAA-2036258

PATIENT
  Age: 59 Year
  Sex: Female

DRUGS (1)
  1. NOVOTHYROX [Suspect]
     Active Substance: LEVOTHYROXINE SODIUM
     Indication: HYPOTHYROIDISM
     Route: 048
     Dates: start: 20170501, end: 20171022

REACTIONS (8)
  - Blood thyroid stimulating hormone [Not Recovered/Not Resolved]
  - Haemorrhage [Not Recovered/Not Resolved]
  - Alopecia [Not Recovered/Not Resolved]
  - Dry eye [Recovered/Resolved]
  - Dry mouth [Not Recovered/Not Resolved]
  - Myalgia [Recovered/Resolved]
  - Arthralgia [Recovered/Resolved]
  - Eye pain [Recovered/Resolved]

NARRATIVE: CASE EVENT DATE: 20170520
